FAERS Safety Report 4391139-8 (Version None)
Quarter: 2004Q2

REPORT INFORMATION
  Report Type: 
  Country: None (occurrence: None)
  Receive Date: 20040621
  Receipt Date: 20031201
  Transmission Date: 20050107
  Serious: Yes (Death)
  Sender: FDA-Public Use
  Company Number: USA-2003-0011599

PATIENT
  Age: 42 Year
  Sex: Male
  Weight: 108.4 kg

DRUGS (9)
  1. OXYCODONE HCL [Suspect]
     Dosage: UNK MG
  2. HYDROCODONE BITARTRATE [Suspect]
     Dosage: UNK MG
  3. ACETAMINOPHEN [Suspect]
  4. CAFFEINE (CAFFEINE) [Suspect]
  5. DIPHENHYDRAMINE HCL [Suspect]
  6. NICOTINE [Suspect]
  7. CANNABIS (CANNABIS) [Suspect]
  8. ALPRAZOLAM [Suspect]
  9. MIRTAZAPINE [Suspect]

REACTIONS (1)
  - ACCIDENTAL OVERDOSE [None]
